FAERS Safety Report 7587096-3 (Version None)
Quarter: 2011Q3

REPORT INFORMATION
  Report Type: 
  Country: None (occurrence: None)
  Receive Date: 20110701
  Receipt Date: 20110624
  Transmission Date: 20111222
  Serious: Yes (Hospitalization)
  Sender: FDA-Public Use
  Company Number: PHHO2011US10995

PATIENT
  Sex: Male
  Weight: 153 kg

DRUGS (6)
  1. TASIGNA [Suspect]
     Indication: CHRONIC MYELOID LEUKAEMIA
     Dosage: 300 MG, BID
     Route: 048
     Dates: start: 20110531, end: 20110620
  2. IMDUR [Concomitant]
     Indication: CORONARY ARTERY DISEASE
  3. SIMVASTATIN [Concomitant]
     Indication: HYPERLIPIDAEMIA
  4. ASPIRIN [Concomitant]
     Indication: CORONARY ARTERY DISEASE
  5. LOPRESSOR [Concomitant]
     Indication: HYPERTENSION
  6. NORTRIPTYLINE HCL [Concomitant]
     Indication: DEPRESSION

REACTIONS (1)
  - MYOCARDIAL INFARCTION [None]
